FAERS Safety Report 18493457 (Version 1)
Quarter: 2020Q4

REPORT INFORMATION
  Report Type: Spontaneous
  Country: US (occurrence: US)
  Receive Date: 20201112
  Receipt Date: 20201112
  Transmission Date: 20210114
  Serious: Yes (Other)
  Sender: FDA-Public Use
  Company Number: US-ROCHE-2710256

PATIENT
  Age: 69 Year
  Sex: Male

DRUGS (3)
  1. VALIUM [Suspect]
     Active Substance: DIAZEPAM
     Indication: PANIC DISORDER
     Dosage: DAILY, CUT DOSE IN HALF ;ONGOING: YES
     Route: 065
  2. VALIUM [Suspect]
     Active Substance: DIAZEPAM
     Indication: ANXIETY
  3. AMLODIPINE [Concomitant]
     Active Substance: AMLODIPINE BESYLATE
     Indication: BLOOD PRESSURE ABNORMAL
     Dosage: UNKNOWN ORIGINAL DOSE ;ONGOING: NO

REACTIONS (4)
  - Intentional product misuse [Unknown]
  - Dependence [Unknown]
  - Blood pressure abnormal [Unknown]
  - Neoplasm malignant [Unknown]
